FAERS Safety Report 13224834 (Version 1)
Quarter: 2017Q1

REPORT INFORMATION
  Report Type: Spontaneous
  Country: US (occurrence: US)
  Receive Date: 20170213
  Receipt Date: 20170213
  Transmission Date: 20170428
  Serious: No
  Sender: FDA-Public Use
  Company Number: US-HORIZON-PEN-0054-2017

PATIENT
  Age: 78 Year
  Sex: Female

DRUGS (7)
  1. POTASSIUM CHLORIDE. [Concomitant]
     Active Substance: POTASSIUM CHLORIDE
  2. PENNSAID [Suspect]
     Active Substance: DICLOFENAC SODIUM
     Indication: ARTHRITIS
     Dosage: 2 PUMPS TWICE DAILY
     Route: 061
     Dates: start: 20170201, end: 20170201
  3. LEVOTHYROXINE. [Concomitant]
     Active Substance: LEVOTHYROXINE
  4. TYLENOL EXTRA STRENGTH [Concomitant]
     Active Substance: ACETAMINOPHEN
  5. LOSARTAN. [Concomitant]
     Active Substance: LOSARTAN
  6. TORSEMIDE. [Concomitant]
     Active Substance: TORSEMIDE
  7. TRAMADOL. [Concomitant]
     Active Substance: TRAMADOL

REACTIONS (10)
  - Off label use [Recovered/Resolved]
  - Pruritus [Recovered/Resolved]
  - Sneezing [Unknown]
  - Balance disorder [Recovered/Resolved]
  - Feeling drunk [Unknown]
  - Application site swelling [Not Recovered/Not Resolved]
  - Rhinorrhoea [Unknown]
  - Fall [Recovered/Resolved]
  - Application site rash [Not Recovered/Not Resolved]
  - Hypersensitivity [Not Recovered/Not Resolved]

NARRATIVE: CASE EVENT DATE: 20170201
